FAERS Safety Report 4342337-0 (Version None)
Quarter: 2004Q2

REPORT INFORMATION
  Report Type: 
  Country: None (occurrence: None)
  Receive Date: 20040416
  Receipt Date: 20040401
  Transmission Date: 20050107
  Serious: Yes (Hospitalization, Other)
  Sender: FDA-Public Use
  Company Number: US-SHR-03-014936

PATIENT
  Age: 50 Year
  Sex: Male

DRUGS (9)
  1. LEUKINE [Suspect]
     Indication: BLOOD STEM CELL HARVEST
     Dosage: UNK, UNK, UNK
     Route: 065
     Dates: start: 20030905, end: 20030901
  2. CYTOXAN [Suspect]
     Indication: BLOOD STEM CELL HARVEST
     Dosage: UNK, UNK, UNK
     Route: 065
     Dates: start: 20030902, end: 20030905
  3. ETOPOSIDE [Suspect]
     Indication: BLOOD STEM CELL HARVEST
     Dosage: UNK, UNK, UNK
     Route: 065
     Dates: start: 20030902, end: 20030905
  4. G-CSF (GRANULOCYTE COLONY STIMULATING FACTOR) [Suspect]
     Dosage: UNK, UNK, UNK
     Route: 065
     Dates: start: 20030912
  5. DEXAMETHASONE [Suspect]
     Indication: BLOOD STEM CELL HARVEST
     Dosage: UNK, UNK, UNK (SEE IMAGE)
     Route: 065
     Dates: start: 20030902, end: 20030905
  6. DEXAMETHASONE [Suspect]
     Indication: BLOOD STEM CELL HARVEST
     Dosage: UNK, UNK, UNK (SEE IMAGE)
     Route: 065
     Dates: start: 20030915
  7. DEXAMETHASONE [Suspect]
     Indication: BLOOD STEM CELL HARVEST
     Dosage: UNK, UNK, UNK (SEE IMAGE)
     Route: 065
     Dates: start: 20030917
  8. MESNA [Suspect]
     Indication: PROPHYLAXIS
     Dosage: UNK, UNK, UNK
     Route: 065
     Dates: start: 20030902, end: 20030905
  9. INTERLEUKIN-2 (INTERLEUKIN-2) [Suspect]
     Indication: BLOOD STEM CELL HARVEST
     Dosage: UNK, UNK, UNK
     Route: 065

REACTIONS (12)
  - ACUTE SINUSITIS [None]
  - ARTHRALGIA [None]
  - CHRONIC SINUSITIS [None]
  - DELAYED ENGRAFTMENT [None]
  - FEBRILE NEUTROPENIA [None]
  - HEADACHE [None]
  - HERPES SIMPLEX [None]
  - MYALGIA [None]
  - NIGHT SWEATS [None]
  - PNEUMONIA ASPIRATION [None]
  - SCAR [None]
  - VIRAL UPPER RESPIRATORY TRACT INFECTION [None]
